FAERS Safety Report 4646546-2 (Version None)
Quarter: 2005Q2

REPORT INFORMATION
  Report Type: 
  Country: None (occurrence: None)
  Receive Date: 20050427
  Receipt Date: 20041014
  Transmission Date: 20051028
  Serious: No
  Sender: FDA-Public Use
  Company Number: US-GLAXOSMITHKLINE-A0529931A

PATIENT
  Age: 66 Year
  Sex: Female

DRUGS (2)
  1. FLOVENT [Suspect]
     Indication: ASTHMA
     Dosage: 2PUFF TWICE PER DAY
     Route: 055
     Dates: start: 20040922
  2. ALBUTEROL [Concomitant]

REACTIONS (3)
  - BURNING SENSATION [None]
  - ORAL MUCOSAL BLISTERING [None]
  - PHARMACEUTICAL PRODUCT COMPLAINT [None]
